FAERS Safety Report 5441413-9 (Version None)
Quarter: 2007Q3

REPORT INFORMATION
  Report Type: 
  Country: None (occurrence: None)
  Receive Date: 20070828
  Receipt Date: 20070828
  Transmission Date: 20080115
  Serious: Yes (Hospitalization)
  Sender: FDA-Public Use
  Company Number: None

PATIENT
  Age: 67 Year
  Sex: Female
  Weight: 96.8 kg

DRUGS (2)
  1. PACLITAXEL [Suspect]
     Indication: PERITONEAL CARCINOMA
     Dosage: 350 MG EVERY 3 WEEKS IV DRIP
     Route: 041
     Dates: start: 20070817, end: 20070817
  2. CARBOPLATIN [Suspect]
     Dosage: 535 MG  EVERY 3 WEEKS  IV DRIP
     Route: 041
     Dates: start: 20070817, end: 20070817

REACTIONS (7)
  - ANAEMIA [None]
  - CELLULITIS STAPHYLOCOCCAL [None]
  - FEBRILE NEUTROPENIA [None]
  - NAUSEA [None]
  - NEUROPATHY [None]
  - PAIN IN EXTREMITY [None]
  - VOMITING [None]
